FAERS Safety Report 8214968-9 (Version None)
Quarter: 2012Q1

REPORT INFORMATION
  Report Type: 
  Country: None (occurrence: None)
  Receive Date: 20120316
  Receipt Date: 20120307
  Transmission Date: 20120608
  Serious: Yes (Hospitalization)
  Sender: FDA-Public Use
  Company Number: US-JNJFOC-20120304079

PATIENT
  Sex: Female

DRUGS (4)
  1. TRAMADOL HYDROCHLORIDE [Suspect]
     Indication: PROCEDURAL PAIN
     Route: 065
  2. ACETAMINOPHEN [Suspect]
     Route: 065
  3. ACETAMINOPHEN [Suspect]
     Indication: PROCEDURAL PAIN
     Dosage: 0.2 TO 0.5 MG ONCE EVERY 6 HOURS
     Route: 065
  4. HYDROMORPHONE HCL [Suspect]
     Indication: PROCEDURAL PAIN
     Dosage: 0.2 TO 0.5 MG ONCE EVERY 6 HOURS
     Route: 065

REACTIONS (4)
  - UNRESPONSIVE TO STIMULI [None]
  - COGNITIVE DISORDER [None]
  - DELIRIUM [None]
  - DRUG INEFFECTIVE [None]
